FAERS Safety Report 19306307 (Version 2)
Quarter: 2022Q1

REPORT INFORMATION
  Report Type: Spontaneous
  Country: VE (occurrence: VE)
  Receive Date: 20210526
  Receipt Date: 20220302
  Transmission Date: 20220424
  Serious: Yes (Hospitalization)
  Sender: FDA-Public Use
  Company Number: VE-NOVARTISPH-NVSC2021VE115591

PATIENT
  Sex: Male

DRUGS (1)
  1. GLIVEC [Suspect]
     Active Substance: IMATINIB MESYLATE
     Indication: Chronic myeloid leukaemia
     Dosage: 400 MG (4X100 MG TABLETS)
     Route: 065

REACTIONS (12)
  - Feeling abnormal [Unknown]
  - Gastroenteritis viral [Unknown]
  - Syncope [Unknown]
  - Discomfort [Unknown]
  - Ill-defined disorder [Unknown]
  - Malaise [Unknown]
  - Productive cough [Unknown]
  - Discouragement [Unknown]
  - Pain in extremity [Unknown]
  - White blood cell count decreased [Unknown]
  - Influenza [Unknown]
  - Pyrexia [Recovered/Resolved]
